FAERS Safety Report 23994220 (Version 1)
Quarter: 2024Q2

REPORT INFORMATION
  Report Type: Spontaneous
  Country: US (occurrence: US)
  Receive Date: 20240620
  Receipt Date: 20240620
  Transmission Date: 20240716
  Serious: Yes (Other)
  Sender: FDA-Public Use
  Company Number: US-PROCTER_AND_GAMBLE-GS24075772

PATIENT
  Age: 25 Year
  Sex: Male

DRUGS (1)
  1. OLD SPICE DEEP SEA WITH OCEAN ELEMENTS [Suspect]
     Active Substance: ALUMINUM ZIRCONIUM TETRACHLOROHYDREX GLY
     Dosage: ONCE A DAY
     Route: 061
     Dates: start: 2023, end: 2024

REACTIONS (7)
  - Dermal cyst [Recovering/Resolving]
  - Chemical burn of skin [Recovering/Resolving]
  - Skin swelling [Recovering/Resolving]
  - Skin irritation [Unknown]
  - Pruritus [Recovering/Resolving]
  - Erythema [Recovering/Resolving]
  - Skin warm [Unknown]

NARRATIVE: CASE EVENT DATE: 20240604
